FAERS Safety Report 22683828 (Version 7)
Quarter: 2024Q2

REPORT INFORMATION
  Report Type: Report from Study
  Country: US (occurrence: US)
  Receive Date: 20230708
  Receipt Date: 20240515
  Transmission Date: 20240716
  Serious: Yes (Hospitalization, Other)
  Sender: FDA-Public Use
  Company Number: US-002147023-NVSC2023US152181

PATIENT
  Age: 61 Year
  Sex: Male

DRUGS (2)
  1. KESIMPTA [Suspect]
     Active Substance: OFATUMUMAB
     Indication: Multiple sclerosis
     Dosage: 20 MG, QMO (0.4 ML)
     Route: 058
     Dates: start: 20230501
  2. KESIMPTA [Suspect]
     Active Substance: OFATUMUMAB
     Dosage: UNK, QW
     Route: 058
     Dates: start: 20230519

REACTIONS (14)
  - Musculoskeletal disorder [Unknown]
  - Tick-borne fever [Unknown]
  - Neuralgia [Unknown]
  - Micturition urgency [Unknown]
  - Pain in extremity [Unknown]
  - Sputum discoloured [Unknown]
  - Vertigo [Unknown]
  - Fall [Unknown]
  - Upper limb fracture [Unknown]
  - Altered visual depth perception [Unknown]
  - Fatigue [Unknown]
  - Mobility decreased [Unknown]
  - Therapy non-responder [Unknown]
  - Limb injury [Unknown]

NARRATIVE: CASE EVENT DATE: 20230630
